APPROVED DRUG PRODUCT: PARAPLATIN
Active Ingredient: CARBOPLATIN
Strength: 150MG/15ML (10MG/ML) **Federal Register determination that product was not discontinued or withdrawn for safety or effectiveness reasons**
Dosage Form/Route: INJECTABLE;INTRAVENOUS
Application: N020452 | Product #002
Applicant: CORDENPHARMA
Approved: Jul 14, 2003 | RLD: Yes | RS: No | Type: DISCN